FAERS Safety Report 24906896 (Version 3)
Quarter: 2025Q2

REPORT INFORMATION
  Report Type: Spontaneous
  Country: US (occurrence: US)
  Receive Date: 20250130
  Receipt Date: 20250511
  Transmission Date: 20250717
  Serious: No
  Sender: SANOFI AVENTIS
  Company Number: US-SA-2025SA029148

PATIENT
  Age: 60 Year
  Sex: Female

DRUGS (21)
  1. DUPIXENT [Suspect]
     Active Substance: DUPILUMAB
     Indication: Pulmonary eosinophilia
     Route: 058
     Dates: start: 20241217, end: 20241217
  2. DUPIXENT [Suspect]
     Active Substance: DUPILUMAB
     Dosage: 300 MG, QOW
     Route: 058
  3. PREDNISONE [Concomitant]
     Active Substance: PREDNISONE
  4. NOURIANZ [Concomitant]
     Active Substance: ISTRADEFYLLINE
  5. FORTEO [Concomitant]
     Active Substance: TERIPARATIDE
  6. FORTEO [Concomitant]
     Active Substance: TERIPARATIDE
  7. SODIUM CHLORIDE [Concomitant]
     Active Substance: SODIUM CHLORIDE
  8. CLOTRIMAZOLE [Concomitant]
     Active Substance: CLOTRIMAZOLE
  9. DIAZEPAM [Concomitant]
     Active Substance: DIAZEPAM
  10. QVAR REDIHALER [Concomitant]
     Active Substance: BECLOMETHASONE DIPROPIONATE
  11. Trihexyphen [Concomitant]
  12. CALCIUM CARBONATE\CHOLECALCIFEROL [Concomitant]
     Active Substance: CALCIUM CARBONATE\CHOLECALCIFEROL
  13. Mag glycinate [Concomitant]
  14. CARBIDOPA AND LEVODOPA [Concomitant]
     Active Substance: CARBIDOPA\LEVODOPA
  15. ESTRADIOL [Concomitant]
     Active Substance: ESTRADIOL
  16. VYVANSE [Concomitant]
     Active Substance: LISDEXAMFETAMINE DIMESYLATE
  17. FASENRA [Concomitant]
     Active Substance: BENRALIZUMAB
  18. PRUCALOPRIDE [Concomitant]
     Active Substance: PRUCALOPRIDE
  19. ARMOUR THYROID [Concomitant]
     Active Substance: THYROID, PORCINE
  20. ALBUTEROL SULFATE [Concomitant]
     Active Substance: ALBUTEROL SULFATE
  21. CLONAZEPAM [Concomitant]
     Active Substance: CLONAZEPAM

REACTIONS (9)
  - Peripheral swelling [Unknown]
  - Fluid retention [Unknown]
  - Joint swelling [Unknown]
  - Eosinophil count increased [Not Recovered/Not Resolved]
  - Impaired quality of life [Not Recovered/Not Resolved]
  - Pulmonary eosinophilia [Not Recovered/Not Resolved]
  - Condition aggravated [Not Recovered/Not Resolved]
  - Loss of personal independence in daily activities [Not Recovered/Not Resolved]
  - Product use in unapproved indication [Unknown]

NARRATIVE: CASE EVENT DATE: 20241217
